FAERS Safety Report 13964184 (Version 1)
Quarter: 2017Q3

REPORT INFORMATION
  Report Type: Spontaneous
  Country: RU (occurrence: RU)
  Receive Date: 20170913
  Receipt Date: 20170913
  Transmission Date: 20171128
  Serious: Yes (Other)
  Sender: FDA-Public Use
  Company Number: RU-ASTRAZENECA-2017SE93071

PATIENT
  Age: 70 Year
  Sex: Female
  Weight: 70 kg

DRUGS (8)
  1. BISOPROLOL [Concomitant]
     Active Substance: BISOPROLOL
     Dosage: 10 MG IN THE MORNING
     Dates: start: 201609
  2. CARDIOMAGNYL [Concomitant]
     Active Substance: ASPIRIN\MAGNESIUM HYDROXIDE
     Dosage: 75.0MG UNKNOWN
  3. SYDNOPHARM [Concomitant]
     Indication: CHEST PAIN
     Dates: start: 20170704
  4. BETASER [Concomitant]
     Indication: DIZZINESS
  5. BRILINTA [Suspect]
     Active Substance: TICAGRELOR
     Indication: MYOCARDIAL INFARCTION
     Route: 048
     Dates: start: 201612
  6. ROSUVASTATIN. [Concomitant]
     Active Substance: ROSUVASTATIN
     Dosage: 20 MG IN THE EVENING
     Dates: start: 201609
  7. GALVUS [Concomitant]
     Active Substance: VILDAGLIPTIN
     Dates: start: 2016
  8. PRESTARIUM [Concomitant]
     Active Substance: PERINDOPRIL
     Dosage: 10 MG IN THE EVENING
     Dates: start: 201609

REACTIONS (1)
  - Vascular stent thrombosis [Not Recovered/Not Resolved]
